FAERS Safety Report 4300418-1 (Version None)
Quarter: 2004Q1

REPORT INFORMATION
  Report Type: 
  Country: None (occurrence: None)
  Receive Date: 20040218
  Receipt Date: 20040218
  Transmission Date: 20041129
  Serious: Yes (Hospitalization)
  Sender: FDA-Public Use
  Company Number: None

PATIENT
  Age: 84 Year
  Sex: Male
  Weight: 72.7 kg

DRUGS (8)
  1. DIGOXIN [Suspect]
     Indication: CARDIAC FAILURE CONGESTIVE
     Dosage: 0.125 MG QD
  2. AMIODARONE [Concomitant]
  3. CARVEDILOL [Concomitant]
  4. FOSINOPRIL SODIUM [Concomitant]
  5. FUROSEMIDE [Concomitant]
  6. M.V.I. [Concomitant]
  7. SPIRONOLACTONE [Concomitant]
  8. TERAZOSIN HCL [Concomitant]

REACTIONS (5)
  - DRUG INTERACTION [None]
  - LETHARGY [None]
  - MARKEDLY REDUCED DIETARY INTAKE [None]
  - RENAL FAILURE [None]
  - TEMPERATURE INTOLERANCE [None]
